FAERS Safety Report 7005277-4 (Version None)
Quarter: 2010Q3

REPORT INFORMATION
  Report Type: 
  Country: None (occurrence: None)
  Receive Date: 20100920
  Receipt Date: 20100920
  Transmission Date: 20110219
  Serious: No
  Sender: FDA-Public Use
  Company Number: None

PATIENT
  Sex: Male
  Weight: 99.7913 kg

DRUGS (1)
  1. LEVAQUIN [Suspect]
     Indication: PROSTATECTOMY
     Dosage: 1 ONCE A DAY PO
     Route: 048
     Dates: start: 20100801, end: 20100805

REACTIONS (4)
  - ASTHENIA [None]
  - DYSPHONIA [None]
  - PAIN IN EXTREMITY [None]
  - URTICARIA [None]
